FAERS Safety Report 17719768 (Version 1)
Quarter: 2020Q2

REPORT INFORMATION
  Report Type: Spontaneous
  Country: GB (occurrence: GB)
  Receive Date: 20200428
  Receipt Date: 20200428
  Transmission Date: 20200714
  Serious: Yes (Death, Other)
  Sender: FDA-Public Use
  Company Number: GB-MYLANLABS-2020M1041825

PATIENT
  Age: 66 Year
  Sex: Female

DRUGS (21)
  1. CARBOPLATIN. [Concomitant]
     Active Substance: CARBOPLATIN
     Dosage: UNK
     Dates: start: 20091009
  2. GEMCITABINE. [Concomitant]
     Active Substance: GEMCITABINE
     Dosage: UNK
     Dates: start: 201303, end: 201311
  3. TAXOTERE [Concomitant]
     Active Substance: DOCETAXEL
     Dosage: 25 MILLIGRAM/SQ. METER
     Dates: start: 201004
  4. TRASTUZUMAB. [Suspect]
     Active Substance: TRASTUZUMAB
     Dosage: UNK
     Dates: start: 200708
  5. TRASTUZUMAB. [Suspect]
     Active Substance: TRASTUZUMAB
     Dosage: UNK
     Dates: start: 201305, end: 201611
  6. CYCLOPHOSPHAMIDE. [Concomitant]
     Active Substance: CYCLOPHOSPHAMIDE
     Dosage: UNK
     Dates: start: 200405, end: 200410
  7. VINORELBINE [Concomitant]
     Active Substance: VINORELBINE TARTRATE
     Dosage: UNK
     Dates: start: 201104
  8. TAXOTERE [Concomitant]
     Active Substance: DOCETAXEL
     Dosage: 6 CYCLES
     Dates: start: 200411, end: 200504
  9. EPIRUBICIN [Concomitant]
     Active Substance: EPIRUBICIN
     Dosage: UNK
     Dates: start: 200405, end: 200410
  10. CYCLOPHOSPHAMIDE. [Concomitant]
     Active Substance: CYCLOPHOSPHAMIDE
     Dosage: UNK
     Dates: start: 201412
  11. VINORELBINE [Concomitant]
     Active Substance: VINORELBINE TARTRATE
     Dosage: UNK
     Route: 048
     Dates: start: 201407
  12. PACLITAXEL. [Concomitant]
     Active Substance: PACLITAXEL
     Dosage: 60 MILLIGRAM/SQ. METER
     Dates: start: 200903, end: 20090609
  13. LAPATINIB [Concomitant]
     Active Substance: LAPATINIB
     Dosage: UNK
  14. CAPECITABINE. [Suspect]
     Active Substance: CAPECITABINE
     Dosage: UNK
     Route: 048
     Dates: start: 200512
  15. METHOTREXATE. [Concomitant]
     Active Substance: METHOTREXATE
     Dosage: UNK
     Dates: start: 201412
  16. PACLITAXEL. [Concomitant]
     Active Substance: PACLITAXEL
     Dosage: 135 MILLIGRAM/SQ. METER
     Dates: start: 200803, end: 200806
  17. ETOPOSIDE. [Concomitant]
     Active Substance: ETOPOSIDE
     Dosage: UNK
  18. CARBOPLATIN. [Concomitant]
     Active Substance: CARBOPLATIN
     Dosage: UNK
     Dates: start: 201605, end: 201611
  19. TRASTUZUMAB. [Suspect]
     Active Substance: TRASTUZUMAB
     Dosage: UNK
     Route: 065
     Dates: start: 200411, end: 200504
  20. TRASTUZUMAB. [Suspect]
     Active Substance: TRASTUZUMAB
     Dosage: UNK
     Route: 065
     Dates: start: 201507
  21. VINORELBINE [Concomitant]
     Active Substance: VINORELBINE TARTRATE
     Dosage: 5 CYCLES
     Dates: start: 200704, end: 200707

REACTIONS (15)
  - Device related infection [Unknown]
  - Dementia [Unknown]
  - Renal failure [Unknown]
  - Metastases to lung [Unknown]
  - Atrial flutter [Unknown]
  - Neutropenic infection [Unknown]
  - Ejection fraction decreased [Unknown]
  - Liver function test abnormal [Unknown]
  - Death [Fatal]
  - Lymphangitis [Unknown]
  - Metastatic neoplasm [Unknown]
  - Urinary tract infection [Unknown]
  - Diarrhoea [Unknown]
  - Lower respiratory tract infection [Unknown]
  - Rash [Unknown]

NARRATIVE: CASE EVENT DATE: 200511
